FAERS Safety Report 19013587 (Version 1)
Quarter: 2021Q1

REPORT INFORMATION
  Report Type: Report from Study
  Country: IT (occurrence: IT)
  Receive Date: 20210316
  Receipt Date: 20210316
  Transmission Date: 20210420
  Serious: No
  Sender: FDA-Public Use
  Company Number: IT-KARYOPHARM-2021KPT000138

PATIENT
  Age: 49 Year
  Sex: Male

DRUGS (2)
  1. SELINEXOR [Suspect]
     Active Substance: SELINEXOR
     Indication: PLASMA CELL MYELOMA
  2. SELINEXOR [Suspect]
     Active Substance: SELINEXOR
     Dosage: UNK

REACTIONS (1)
  - Thrombocytopenia [Unknown]
